FAERS Safety Report 16874132 (Version 3)
Quarter: 2019Q4

REPORT INFORMATION
  Report Type: Spontaneous
  Country: PT (occurrence: PT)
  Receive Date: 20191001
  Receipt Date: 20191011
  Transmission Date: 20200122
  Serious: Yes (Life-Threatening, Hospitalization)
  Sender: FDA-Public Use
  Company Number: PT-ASTRAZENECA-2019SF36644

PATIENT
  Age: 25150 Day
  Sex: Male

DRUGS (11)
  1. NEBIVOLOL. [Concomitant]
     Active Substance: NEBIVOLOL
     Dosage: 5MG, ID
     Route: 048
  2. XALATAN [Concomitant]
     Active Substance: LATANOPROST
     Dosage: EYE DROPS
  3. ATORVASTATIN [Concomitant]
     Active Substance: ATORVASTATIN
     Dosage: 10MG, ID
     Route: 048
  4. ACARBOSE. [Concomitant]
     Active Substance: ACARBOSE
     Dosage: 50MG, 2ID
     Route: 048
  5. LOSARTAN AND HYDROCHLOROTHIAZIDE [Concomitant]
     Active Substance: HYDROCHLOROTHIAZIDE\LOSARTAN POTASSIUM
     Dosage: 100/25MG, ID
     Route: 048
  6. METFORMIN [Concomitant]
     Active Substance: METFORMIN HYDROCHLORIDE
     Dosage: 1000MG ID
     Route: 048
  7. XIGDUO XR [Suspect]
     Active Substance: DAPAGLIFLOZIN PROPANEDIOL\METFORMIN HYDROCHLORIDE
     Indication: TYPE 2 DIABETES MELLITUS
     Dosage: 5/1000 MG, POSOLOGY: 2ID
     Route: 048
     Dates: start: 201805, end: 20190911
  8. GLICLAZIDE [Concomitant]
     Active Substance: GLICLAZIDE
     Dosage: 60MG, ID 120MG
     Route: 048
  9. AMLODIPINE [Concomitant]
     Active Substance: AMLODIPINE BESYLATE
     Dosage: 5MG ID
     Route: 048
  10. COSOPT [Concomitant]
     Active Substance: DORZOLAMIDE HYDROCHLORIDE\TIMOLOL MALEATE
     Dosage: EYE DROPS
  11. FUROSEMIDE. [Concomitant]
     Active Substance: FUROSEMIDE
     Dosage: 40MG ID
     Route: 048

REACTIONS (3)
  - Purulent discharge [Unknown]
  - Diabetic foot infection [Not Recovered/Not Resolved]
  - Necrosis [Unknown]

NARRATIVE: CASE EVENT DATE: 20190907
